FAERS Safety Report 11844750 (Version 2)
Quarter: 2016Q1

REPORT INFORMATION
  Report Type: Spontaneous
  Country: CH (occurrence: FI)
  Receive Date: 20151217
  Receipt Date: 20160105
  Transmission Date: 20160526
  Serious: Yes (Hospitalization)
  Sender: FDA-Public Use
  Company Number: CH-LPDUSPRD-20150991

PATIENT
  Age: 35 Year
  Sex: Female
  Weight: 60 kg

DRUGS (2)
  1. PULMICORT TURBUHALER [Concomitant]
     Active Substance: BUDESONIDE
     Dosage: 800 MCG 1 IN 1 D
     Route: 055
  2. FERINJECT [Suspect]
     Active Substance: FERRIC CARBOXYMALTOSE
     Dosage: 1000  MG IN 250 ML NACL
     Route: 041
     Dates: start: 20151029, end: 20151029

REACTIONS (10)
  - Oedema peripheral [Recovered/Resolved]
  - Urticaria [Recovered/Resolved]
  - Chest discomfort [Recovered/Resolved]
  - Angioedema [Recovered/Resolved]
  - Flushing [Recovered/Resolved]
  - Pallor [Recovered/Resolved]
  - Respiratory distress [Recovered/Resolved]
  - Hyperventilation [Recovered/Resolved]
  - Dyspnoea [Recovered/Resolved]
  - Pruritus [Recovered/Resolved]

NARRATIVE: CASE EVENT DATE: 20151029
